FAERS Safety Report 24688793 (Version 1)
Quarter: 2024Q4

REPORT INFORMATION
  Report Type: Report from Study
  Country: CA (occurrence: CA)
  Receive Date: 20241203
  Receipt Date: 20241203
  Transmission Date: 20250115
  Serious: Yes (Hospitalization)
  Sender: APOTEX
  Company Number: CA-APOTEX-2024AP019130

PATIENT
  Age: 62 Year
  Sex: Male

DRUGS (1)
  1. LENALIDOMIDE [Suspect]
     Active Substance: LENALIDOMIDE
     Indication: Plasma cell myeloma
     Dosage: 25 MILLIGRAM, QD
     Route: 048
     Dates: start: 20240506

REACTIONS (2)
  - Stem cell transplant [Unknown]
  - Off label use [Unknown]

NARRATIVE: CASE EVENT DATE: 20240506
